FAERS Safety Report 8525300-5 (Version None)
Quarter: 2012Q3

REPORT INFORMATION
  Report Type: 
  Country: None (occurrence: None)
  Receive Date: 20120720
  Receipt Date: 20120718
  Transmission Date: 20120928
  Serious: Yes (Hospitalization)
  Sender: FDA-Public Use
  Company Number: PHEH2011US012746

PATIENT
  Sex: Female

DRUGS (2)
  1. CAYSTON [Concomitant]
  2. TOBI [Suspect]
     Indication: CYSTIC FIBROSIS
     Dosage: 300 MG, BID

REACTIONS (2)
  - CYSTIC FIBROSIS [None]
  - DISEASE COMPLICATION [None]
